FAERS Safety Report 14990431 (Version 2)
Quarter: 2019Q2

REPORT INFORMATION
  Report Type: Spontaneous
  Country: US (occurrence: US)
  Receive Date: 20180608
  Receipt Date: 20190619
  Transmission Date: 20190711
  Serious: No
  Sender: FDA-Public Use
  Company Number: US-ROCHE-2090423

PATIENT
  Age: 54 Year
  Sex: Female
  Weight: 53.57 kg

DRUGS (2)
  1. ACTEMRA [Suspect]
     Active Substance: TOCILIZUMAB
     Route: 058
     Dates: start: 2017, end: 201712
  2. ACTEMRA [Suspect]
     Active Substance: TOCILIZUMAB
     Indication: RHEUMATOID ARTHRITIS
     Dosage: ONGOING: NO
     Route: 058
     Dates: start: 201703, end: 2017

REACTIONS (8)
  - Influenza [Recovered/Resolved]
  - Hepatic enzyme increased [Recovered/Resolved]
  - Depression [Recovering/Resolving]
  - Asthenia [Unknown]
  - Anxiety [Unknown]
  - Emotional distress [Unknown]
  - Amnesia [Unknown]
  - Fatigue [Recovering/Resolving]

NARRATIVE: CASE EVENT DATE: 2017
